FAERS Safety Report 6721059-2 (Version None)
Quarter: 2010Q2

REPORT INFORMATION
  Report Type: 
  Country: None (occurrence: None)
  Receive Date: 20100510
  Receipt Date: 20100429
  Transmission Date: 20101027
  Serious: Yes (Other)
  Sender: FDA-Public Use
  Company Number: CA-1181666

PATIENT

DRUGS (2)
  1. BSS [Suspect]
     Route: 031
  2. DUOVISC (VISCOAT) [Concomitant]

REACTIONS (3)
  - PRODUCT CLEANING INADEQUATE [None]
  - PRODUCT STERILITY LACKING [None]
  - TOXIC ANTERIOR SEGMENT SYNDROME [None]
